FAERS Safety Report 8035881-6 (Version None)
Quarter: 2012Q1

REPORT INFORMATION
  Report Type: 
  Country: None (occurrence: None)
  Receive Date: 20120111
  Receipt Date: 20120111
  Transmission Date: 20120608
  Serious: Yes (Other)
  Sender: FDA-Public Use
  Company Number: None

PATIENT
  Age: 32 Year
  Sex: Male
  Weight: 97.522 kg

DRUGS (1)
  1. LEVOFLOXACIN [Suspect]
     Indication: URINARY TRACT INFECTION
     Dosage: 500MG
     Route: 048
     Dates: start: 20120102, end: 20120108

REACTIONS (10)
  - DIARRHOEA [None]
  - HYPERSOMNIA [None]
  - ARTHROPATHY [None]
  - FATIGUE [None]
  - MYALGIA [None]
  - FEELING ABNORMAL [None]
  - NAUSEA [None]
  - PROCEDURAL SITE REACTION [None]
  - ARTHRALGIA [None]
  - PROCEDURAL PAIN [None]
